FAERS Safety Report 9094189 (Version 1)
Quarter: 2013Q1

REPORT INFORMATION
  Report Type: Spontaneous
  Country: US (occurrence: None)
  Receive Date: 20130214
  Receipt Date: 20130214
  Transmission Date: 20140127
  Serious: Yes (Other)
  Sender: FDA-Public Use
  Company Number: None

PATIENT
  Age: 82 Year
  Sex: Male

DRUGS (1)
  1. ENBREL 50 MG [Suspect]
     Dosage: INJECTABLE
     Dates: start: 200701

REACTIONS (1)
  - Leukaemia [None]
